FAERS Safety Report 17910523 (Version 1)
Quarter: 2020Q2

REPORT INFORMATION
  Report Type: Spontaneous
  Country: US (occurrence: US)
  Receive Date: 20200618
  Receipt Date: 20200618
  Transmission Date: 20200714
  Serious: No
  Sender: FDA-Public Use
  Company Number: US-ELI_LILLY_AND_COMPANY-US202006004222

PATIENT
  Age: 20 Year
  Sex: Male

DRUGS (1)
  1. HUMALOG [Suspect]
     Active Substance: INSULIN LISPRO
     Indication: PRODUCT USED FOR UNKNOWN INDICATION
     Dosage: UNK, TID(3CC THREE TIMES A DAY)
     Route: 058

REACTIONS (5)
  - Discomfort [Unknown]
  - Wrong technique in product usage process [Unknown]
  - Abdominal pain [Unknown]
  - Muscle twitching [Unknown]
  - Crying [Unknown]

NARRATIVE: CASE EVENT DATE: 202005
